FAERS Safety Report 25929089 (Version 1)
Quarter: 2025Q4

REPORT INFORMATION
  Report Type: Spontaneous
  Country: EU (occurrence: EU)
  Receive Date: 20251016
  Receipt Date: 20251016
  Transmission Date: 20260119
  Serious: Yes (Hospitalization)
  Sender: ACCORD
  Company Number: None

PATIENT
  Age: 26 Year
  Sex: Male

DRUGS (2)
  1. ETOPOSIDE [Suspect]
     Active Substance: ETOPOSIDE
     Indication: Testis cancer
     Dates: start: 20250805, end: 20250809
  2. CISPLATIN [Suspect]
     Active Substance: CISPLATIN
     Indication: Testis cancer
     Dates: start: 20250805, end: 20250809

REACTIONS (2)
  - Hepatic cytolysis [Unknown]
  - Cholestasis [Unknown]

NARRATIVE: CASE EVENT DATE: 20250901
